FAERS Safety Report 8108916-X (Version None)
Quarter: 2012Q1

REPORT INFORMATION
  Report Type: 
  Country: None (occurrence: None)
  Receive Date: 20120202
  Receipt Date: 20120125
  Transmission Date: 20120608
  Serious: Yes (Hospitalization)
  Sender: FDA-Public Use
  Company Number: US-GLAXOSMITHKLINE-B0719541A

PATIENT
  Age: 73 Year
  Sex: Female
  Weight: 72.3 kg

DRUGS (1)
  1. AVANDIA [Suspect]
     Indication: DIABETES MELLITUS
     Route: 048
     Dates: start: 20050101, end: 20090101

REACTIONS (3)
  - MEMORY IMPAIRMENT [None]
  - ACUTE MYOCARDIAL INFARCTION [None]
  - RESPIRATORY DISTRESS [None]
